FAERS Safety Report 9772294 (Version 2)
Quarter: 2014Q1

REPORT INFORMATION
  Report Type: Spontaneous
  Country: US (occurrence: US)
  Receive Date: 20131219
  Receipt Date: 20140115
  Transmission Date: 20141002
  Serious: Yes (Other)
  Sender: FDA-Public Use
  Company Number: US-TEVA-451306USA

PATIENT
  Age: 34 Year
  Sex: Female
  Weight: 74 kg

DRUGS (7)
  1. PARAGARD 380A [Suspect]
     Indication: CONTRACEPTION
     Route: 015
     Dates: start: 20131210, end: 20131210
  2. ECTANEL [Concomitant]
  3. KLONOPIN [Concomitant]
  4. PREDNISONE [Concomitant]
  5. OMEPRAZOLE [Concomitant]
  6. BENTYL [Concomitant]
  7. CARAFATE [Concomitant]

REACTIONS (2)
  - Device dislocation [Recovered/Resolved]
  - Discomfort [Recovered/Resolved]
